FAERS Safety Report 4402832-2 (Version None)
Quarter: 2004Q3

REPORT INFORMATION
  Report Type: 
  Country: None (occurrence: None)
  Receive Date: 20040720
  Receipt Date: 20040720
  Transmission Date: 20050211
  Serious: Yes (Life-Threatening, Hospitalization)
  Sender: FDA-Public Use
  Company Number: None

PATIENT
  Sex: Male
  Weight: 96.9 kg

DRUGS (8)
  1. GLEEVEC [Suspect]
     Indication: GLIOBLASTOMA MULTIFORME
     Dosage: 400 MG PO QD
     Route: 048
     Dates: start: 20040715
  2. TEMOZOLOMIDE-SCHERING PLOUGH [Suspect]
     Indication: GLIOBLASTOMA MULTIFORME
     Dosage: 440 MG PO QD
     Route: 048
     Dates: start: 20040708
  3. DECADRON [Concomitant]
  4. DILANTIN [Concomitant]
  5. LISINOPRIL [Concomitant]
  6. ALLOPURINOL [Concomitant]
  7. VICODIN [Concomitant]
  8. FIORICET [Concomitant]

REACTIONS (1)
  - PULMONARY EMBOLISM [None]
